FAERS Safety Report 7226111-3 (Version None)
Quarter: 2011Q1

REPORT INFORMATION
  Report Type: 
  Country: None (occurrence: None)
  Receive Date: 20110114
  Receipt Date: 20101231
  Transmission Date: 20110831
  Serious: Yes (Other)
  Sender: FDA-Public Use
  Company Number: GB-RANBAXY-2010R1-40839

PATIENT
  Age: 75 Year
  Sex: Female

DRUGS (10)
  1. CEFUROXIME [Suspect]
     Indication: KERATITIS FUNGAL
     Dosage: UNK
     Route: 065
  2. ITRACONAZOLE [Suspect]
     Indication: KERATITIS FUNGAL
     Dosage: 100 MG, BID
     Route: 048
  3. GENTAMICIN [Suspect]
     Indication: KERATITIS FUNGAL
     Dosage: 1.5 %, UNK
     Route: 065
  4. VORICONAZOLE [Suspect]
     Indication: KERATITIS FUNGAL
     Dosage: UNK
     Route: 048
  5. DEXAMETHASONE [Suspect]
     Indication: PROPHYLAXIS
     Dosage: .1 %, QID
     Route: 061
  6. DEXAMETHASONE [Suspect]
     Dosage: UNK
     Route: 061
  7. OFLOXACIN [Suspect]
     Indication: KERATITIS FUNGAL
     Dosage: UNK
     Route: 065
  8. AMPHOTERICIN B [Suspect]
     Indication: PROPHYLAXIS
     Dosage: UNK
     Route: 065
  9. FLUCONAZOLE [Suspect]
     Indication: KERATITIS FUNGAL
     Dosage: .2 %, UNK
     Route: 061
  10. FLUCONAZOLE [Suspect]
     Dosage: UNK
     Route: 061

REACTIONS (1)
  - KERATITIS FUNGAL [None]
